FAERS Safety Report 6395841-8 (Version None)
Quarter: 2009Q4

REPORT INFORMATION
  Report Type: 
  Country: None (occurrence: None)
  Receive Date: 20091009
  Receipt Date: 20090708
  Transmission Date: 20100525
  Serious: No
  Sender: FDA-Public Use
  Company Number: A0795891A

PATIENT
  Age: 69 Year
  Sex: Female

DRUGS (19)
  1. TYKERB [Suspect]
     Indication: BREAST CANCER
     Dosage: 1250MG PER DAY
     Route: 048
     Dates: start: 20090630
  2. RADIATION THERAPY [Suspect]
     Indication: BREAST CANCER
     Dates: start: 20090501
  3. VICODIN [Concomitant]
  4. NORVASC [Concomitant]
  5. FUROSEMIDE [Concomitant]
  6. PREDNISONE [Concomitant]
  7. OXYGEN [Concomitant]
  8. MAGNESIUM [Concomitant]
  9. ASPIRIN [Concomitant]
  10. SIMVASTATIN [Concomitant]
  11. PEPCID [Concomitant]
  12. IRON [Concomitant]
  13. FLUOXETINE [Concomitant]
  14. SULFAMETHOXAZOLE + TRIMETHOPRIM [Concomitant]
  15. ATENOLOL [Concomitant]
  16. AVALIDE [Concomitant]
  17. IPRATROPIUM [Concomitant]
     Route: 055
  18. PULMICORT [Concomitant]
  19. ALBUTEROL [Concomitant]

REACTIONS (1)
  - NAUSEA [None]
